FAERS Safety Report 10837631 (Version 1)
Quarter: 2015Q1

REPORT INFORMATION
  Report Type: Report from Study
  Country: US (occurrence: US)
  Receive Date: 20150219
  Receipt Date: 20150219
  Transmission Date: 20150721
  Serious: No
  Sender: FDA-Public Use
  Company Number: US-ABBVIE-14P-163-1219562-00

PATIENT
  Age: 50 Year
  Sex: Male

DRUGS (2)
  1. HUMIRA [Suspect]
     Active Substance: ADALIMUMAB
     Indication: PSORIASIS
     Dates: start: 201401, end: 20140504
  2. LIBRIUM [Concomitant]
     Active Substance: CHLORDIAZEPOXIDE HYDROCHLORIDE
     Indication: ANXIETY

REACTIONS (12)
  - Influenza [Unknown]
  - Hypersensitivity [Unknown]
  - Body temperature increased [Not Recovered/Not Resolved]
  - Malaise [Not Recovered/Not Resolved]
  - Drug effect decreased [Unknown]
  - Heat exhaustion [Unknown]
  - Headache [Unknown]
  - Malaise [Unknown]
  - Streptococcal infection [Recovered/Resolved]
  - Pyrexia [Unknown]
  - Splinter [Recovering/Resolving]
  - Scratch [Recovering/Resolving]

NARRATIVE: CASE EVENT DATE: 201401
